FAERS Safety Report 5009352-5 (Version None)
Quarter: 2006Q2

REPORT INFORMATION
  Report Type: 
  Country: None (occurrence: None)
  Receive Date: 20060524
  Receipt Date: 20060511
  Transmission Date: 20061013
  Serious: Yes (Hospitalization)
  Sender: FDA-Public Use
  Company Number: GBWYE609308MAY06

PATIENT
  Age: 47 Year
  Sex: Female

DRUGS (3)
  1. ENBREL [Suspect]
     Indication: DRUG USE FOR UNKNOWN INDICATION
     Route: 058
     Dates: start: 20060421
  2. ENBREL [Suspect]
     Dosage: UNKNOWN
     Route: 058
     Dates: start: 20060101
  3. CARBAMAZEPINE [Concomitant]
     Indication: EPILEPSY
     Dosage: UNKNOWN

REACTIONS (5)
  - CONDITION AGGRAVATED [None]
  - EPILEPSY [None]
  - NECK INJURY [None]
  - ROAD TRAFFIC ACCIDENT [None]
  - SPINAL CORD INJURY [None]
